FAERS Safety Report 16078819 (Version 1)
Quarter: 2019Q1

REPORT INFORMATION
  Report Type: Spontaneous
  Country: US (occurrence: US)
  Receive Date: 20190315
  Receipt Date: 20190315
  Transmission Date: 20190418
  Serious: No
  Sender: FDA-Public Use
  Company Number: US-PERRIGO-18US007561

PATIENT
  Sex: Male
  Weight: 72.56 kg

DRUGS (2)
  1. SCOPOLAMINE [Suspect]
     Active Substance: SCOPOLAMINE
     Dosage: 1 MG (ON BACK), EVERY THREE DAYS
     Route: 062
     Dates: start: 2014
  2. SCOPOLAMINE [Suspect]
     Active Substance: SCOPOLAMINE
     Indication: DROOLING
     Dosage: 1 MG (BEHIND EARS), EVERY THREE DAYS
     Route: 062
     Dates: start: 2014, end: 2014

REACTIONS (5)
  - Application site erythema [Not Recovered/Not Resolved]
  - Application site haemorrhage [Recovered/Resolved]
  - Off label use [Not Recovered/Not Resolved]
  - Therapeutic response unexpected [Not Recovered/Not Resolved]
  - Product administered at inappropriate site [Not Recovered/Not Resolved]

NARRATIVE: CASE EVENT DATE: 2014
